FAERS Safety Report 7075461-2 (Version None)
Quarter: 2010Q4

REPORT INFORMATION
  Report Type: 
  Country: None (occurrence: None)
  Receive Date: 20101030
  Receipt Date: 20100909
  Transmission Date: 20110411
  Serious: No
  Sender: FDA-Public Use
  Company Number: US-WYE-H17436110

PATIENT
  Sex: Female

DRUGS (1)
  1. PRISTIQ [Suspect]

REACTIONS (2)
  - SOMNOLENCE [None]
  - WEIGHT DECREASED [None]
